FAERS Safety Report 9366217 (Version 2)
Quarter: 2013Q3

REPORT INFORMATION
  Report Type: Spontaneous
  Country: BR (occurrence: BR)
  Receive Date: 20130625
  Receipt Date: 20130703
  Transmission Date: 20140515
  Serious: Yes (Hospitalization)
  Sender: FDA-Public Use
  Company Number: BR-JNJFOC-20130608951

PATIENT
  Age: 21 Year
  Sex: Female
  Weight: 50 kg

DRUGS (2)
  1. TYLENOL 750 [Suspect]
     Route: 048
  2. TYLENOL 750 [Suspect]
     Indication: PRODUCT USED FOR UNKNOWN INDICATION
     Dosage: 10 CAPLETS
     Route: 048
     Dates: start: 20130611, end: 20130611

REACTIONS (4)
  - Toxicity to various agents [Recovering/Resolving]
  - Intentional overdose [Recovered/Resolved]
  - Dizziness [Recovered/Resolved]
  - Nausea [Recovered/Resolved]
